FAERS Safety Report 4615075-4 (Version None)
Quarter: 2005Q1

REPORT INFORMATION
  Report Type: 
  Country: None (occurrence: None)
  Receive Date: 20050315
  Receipt Date: 20050228
  Transmission Date: 20050727
  Serious: Yes (Hospitalization)
  Sender: FDA-Public Use
  Company Number: 2005BI004259

PATIENT
  Age: 42 Year
  Sex: Female

DRUGS (4)
  1. AVONEX [Suspect]
     Indication: MULTIPLE SCLEROSIS
     Dosage: 30 UG; QW; IM
     Route: 030
     Dates: start: 20040101
  2. DELIX [Concomitant]
  3. IOD SUPPLEMENT [Concomitant]
  4. ORAL CONTRACEPTIVE [Concomitant]

REACTIONS (2)
  - FACIAL PAIN [None]
  - HERPES SIMPLEX [None]
